FAERS Safety Report 9959131 (Version 1)
Quarter: 2014Q1

REPORT INFORMATION
  Report Type: Report from Study
  Country: US (occurrence: US)
  Receive Date: 20140305
  Receipt Date: 20140305
  Transmission Date: 20141002
  Serious: No
  Sender: FDA-Public Use
  Company Number: US-ABBVIE-13P-163-1106584-00

PATIENT
  Age: 27 Year
  Sex: Female

DRUGS (7)
  1. HUMIRA [Suspect]
     Indication: COLITIS ULCERATIVE
     Dosage: LOADING DOSE
     Dates: start: 20130612, end: 20130612
  2. ASACOL [Concomitant]
     Indication: COLITIS ULCERATIVE
  3. LYSINE [Concomitant]
     Indication: IMMUNE SYSTEM DISORDER
     Dosage: SUPPLEMENT
  4. CYMBALTA [Concomitant]
     Indication: ANXIETY
     Dosage: DAILY
  5. TYLENOL W/CODEINE NO. 3 [Concomitant]
     Indication: PAIN
     Dosage: TAKES PRETTY MUCH DAILY
  6. FIORICET [Concomitant]
     Indication: HEADACHE
  7. UNKNOWN ANTIBIOTIC [Concomitant]
     Indication: STAPHYLOCOCCAL INFECTION

REACTIONS (1)
  - Injection site pain [Recovered/Resolved]
